FAERS Safety Report 8253992-7 (Version None)
Quarter: 2012Q2

REPORT INFORMATION
  Report Type: 
  Country: None (occurrence: None)
  Receive Date: 20120402
  Receipt Date: 20120319
  Transmission Date: 20120825
  Serious: No
  Sender: FDA-Public Use
  Company Number: US-AMGEN-USASP2012017682

PATIENT
  Sex: Female

DRUGS (3)
  1. ENBREL [Suspect]
     Indication: RHEUMATOID ARTHRITIS
     Dosage: 50 MG, QWK
     Dates: start: 20080101
  2. METHOTREXATE [Concomitant]
     Dosage: 7.5 MG, WEEKLY
  3. PREDNISONE TAB [Concomitant]
     Dosage: 7MG PER WEEK (DOWN FROM 21 MG PER WEEK)

REACTIONS (4)
  - JOINT SWELLING [None]
  - JOINT STIFFNESS [None]
  - FATIGUE [None]
  - ANAEMIA [None]
